FAERS Safety Report 5681009-7 (Version None)
Quarter: 2008Q1

REPORT INFORMATION
  Report Type: 
  Country: None (occurrence: None)
  Receive Date: 20080325
  Receipt Date: 20080317
  Transmission Date: 20080703
  Serious: Yes (Hospitalization)
  Sender: FDA-Public Use
  Company Number: 16914

PATIENT
  Age: 69 Year
  Sex: Male
  Weight: 64.8644 kg

DRUGS (22)
  1. PENTOSTATIN [Suspect]
     Dosage: 7.24 MG 3/WK IV
     Route: 042
     Dates: start: 20070123, end: 20070626
  2. CYTOXAN [Suspect]
     Dosage: 108 MG 3/WK IV
     Route: 042
     Dates: start: 20070123, end: 20070626
  3. COMPAZINE [Concomitant]
  4. TOPROL-XL [Concomitant]
  5. LIPITOR [Concomitant]
  6. PRILOSEC [Concomitant]
  7. ASPIRIN [Concomitant]
  8. NIACIN [Concomitant]
  9. FEOSOL [Concomitant]
  10. CITRICAL [Concomitant]
  11. CENTRUM SILVER [Concomitant]
  12. FISH OIL CAPS [Concomitant]
  13. ACYCLOVIR [Concomitant]
  14. ALLOPURINOL [Concomitant]
  15. DAPSONE [Concomitant]
  16. ARANESP [Concomitant]
  17. TYLENOL (CAPLET) [Concomitant]
  18. VESICARE [Concomitant]
  19. FLOMAX [Concomitant]
  20. OXYGEN [Concomitant]
  21. BENZONATATE [Concomitant]
  22. CALTRATE + D [Concomitant]

REACTIONS (17)
  - ASPIRATION PLEURAL CAVITY ABNORMAL [None]
  - CONDITION AGGRAVATED [None]
  - CORONARY ARTERY BYPASS [None]
  - DIARRHOEA [None]
  - HYPOXIA [None]
  - NEUTROPENIA [None]
  - OEDEMA PERIPHERAL [None]
  - PANCYTOPENIA [None]
  - PLEURAL EFFUSION [None]
  - PNEUMONIA [None]
  - PNEUMONITIS [None]
  - PRODUCTIVE COUGH [None]
  - PULMONARY EMBOLISM [None]
  - SPLENOMEGALY [None]
  - SPUTUM DISCOLOURED [None]
  - TRANSFUSION REACTION [None]
  - WEIGHT DECREASED [None]
